FAERS Safety Report 7914577-2 (Version None)
Quarter: 2011Q4

REPORT INFORMATION
  Report Type: 
  Country: None (occurrence: None)
  Receive Date: 20111115
  Receipt Date: 20111106
  Transmission Date: 20120403
  Serious: Yes (Other)
  Sender: FDA-Public Use
  Company Number: PHHY2011IL098075

PATIENT
  Age: 80 Year
  Sex: Female

DRUGS (3)
  1. GLEEVEC [Suspect]
     Dosage: 600 MG, UNK
     Route: 048
  2. GLEEVEC [Suspect]
     Dosage: 800 MG, UNK
     Route: 048
  3. GLEEVEC [Suspect]
     Indication: CHRONIC MYELOID LEUKAEMIA
     Dosage: 400 MG, UNK
     Route: 048

REACTIONS (2)
  - LEFT VENTRICULAR DYSFUNCTION [None]
  - CARDIOMYOPATHY [None]
